FAERS Safety Report 16859523 (Version 2)
Quarter: 2019Q4

REPORT INFORMATION
  Report Type: Other
  Country: DE (occurrence: DE)
  Receive Date: 20190927
  Receipt Date: 20191004
  Transmission Date: 20200122
  Serious: Yes (Death, Congenital Anomaly, Other)
  Sender: FDA-Public Use
  Company Number: DE-TOPROL ACQUISITION LLC-2019-TOP-001164

PATIENT
  Sex: Male
  Weight: 2 kg

DRUGS (22)
  1. METOPROLOL SUCCINATE. [Suspect]
     Active Substance: METOPROLOL SUCCINATE
     Indication: RENAL HYPERTENSION
     Dosage: 142.5 [MG/D (95-0-47.5)]
     Route: 064
     Dates: start: 2012
  2. METHYLDOPA. [Suspect]
     Active Substance: METHYLDOPA
     Dosage: 2 DF, QD
     Route: 064
     Dates: start: 20130702, end: 20140114
  3. FOLIC ACID. [Concomitant]
     Active Substance: FOLIC ACID
     Indication: PROPHYLAXIS OF NEURAL TUBE DEFECT
     Dosage: 0.6 MG, QD
     Route: 064
     Dates: start: 20130702, end: 20131217
  4. AZATHIOPRINE. [Suspect]
     Active Substance: AZATHIOPRINE
     Dosage: 100 MG, QD
     Route: 064
  5. AZATHIOPRINE. [Suspect]
     Active Substance: AZATHIOPRINE
     Dosage: UNK
     Dates: start: 20130702, end: 20140114
  6. PROGRAF [Suspect]
     Active Substance: TACROLIMUS
     Dosage: UNK
     Route: 064
     Dates: start: 20130702, end: 20140114
  7. PROGRAF [Suspect]
     Active Substance: TACROLIMUS
     Indication: PROPHYLAXIS AGAINST TRANSPLANT REJECTION
     Dosage: 5.5 [MG/D (3-0-2.5 MG/D) ]
     Route: 064
     Dates: start: 2007
  8. AMLODIPINE [Concomitant]
     Active Substance: AMLODIPINE BESYLATE
     Indication: RENAL HYPERTENSION
     Dosage: 7.5 MG, QD
     Route: 064
  9. METOPROLOL SUCCINATE. [Suspect]
     Active Substance: METOPROLOL SUCCINATE
     Dosage: 70.75 [MG/D (47.5-0-23.75) ]
     Route: 064
  10. BETAMETHASONE. [Concomitant]
     Active Substance: BETAMETHASONE
     Indication: MATERNAL THERAPY TO ENHANCE FOETAL LUNG MATURITY
     Dosage: IN WEEK 25+3
     Route: 064
     Dates: start: 20140114
  11. AMPICILLIN [Concomitant]
     Active Substance: AMPICILLIN
     Indication: ANTIBIOTIC PROPHYLAXIS
     Dosage: UNK
     Route: 064
     Dates: start: 20140114, end: 20140114
  12. METOPROLOL SUCCINATE. [Suspect]
     Active Substance: METOPROLOL SUCCINATE
     Dosage: UNK
     Route: 064
     Dates: start: 20130702, end: 20131217
  13. AZATHIOPRINE. [Suspect]
     Active Substance: AZATHIOPRINE
     Indication: PROPHYLAXIS AGAINST TRANSPLANT REJECTION
     Dosage: 50 MG, BID
     Route: 064
     Dates: start: 2012
  14. PARTUSISTEN [Concomitant]
     Active Substance: FENOTEROL
     Indication: TOCOLYSIS
     Dosage: UNK
     Route: 064
     Dates: start: 20140114, end: 20140114
  15. LEVOTHYROXINE SODIUM. [Concomitant]
     Active Substance: LEVOTHYROXINE SODIUM
     Indication: HYPOTHYROIDISM
     Dosage: 12.5 ?G, BID
     Route: 064
     Dates: start: 20130702, end: 20140114
  16. COLECALCIFEROL [Concomitant]
     Active Substance: CHOLECALCIFEROL
     Dosage: 20000 IU, WEEKLY
     Route: 064
     Dates: start: 20130702, end: 20131217
  17. ADALAT [Concomitant]
     Active Substance: NIFEDIPINE
     Indication: TOCOLYSIS
     Route: 064
  18. METOPROLOL SUCCINATE. [Suspect]
     Active Substance: METOPROLOL SUCCINATE
     Dosage: 70.75 [MG/D (47.5-0-23.75) ]
     Route: 064
     Dates: start: 20140114, end: 20140114
  19. BETAMETHASONE. [Concomitant]
     Active Substance: BETAMETHASONE
     Dosage: 25+4
     Route: 064
  20. BETAMETHASONE. [Concomitant]
     Active Substance: BETAMETHASONE
     Dosage: AGAIN IN WEEK 28+0
     Route: 064
  21. METHYLDOPA. [Suspect]
     Active Substance: METHYLDOPA
     Indication: RENAL HYPERTENSION
     Dosage: 250 MG, BID
     Route: 064
     Dates: start: 2010
  22. COLECALCIFEROL [Concomitant]
     Active Substance: CHOLECALCIFEROL
     Indication: VITAMIN SUPPLEMENTATION
     Dosage: 20000 IU, WEEKLY
     Route: 064
     Dates: start: 2007

REACTIONS (6)
  - Neonatal respiratory failure [Fatal]
  - Polyhydramnios [Fatal]
  - Hydrops foetalis [Fatal]
  - Foetal exposure during pregnancy [Unknown]
  - Congenital cystic lung [Fatal]
  - Large for dates baby [Unknown]

NARRATIVE: CASE EVENT DATE: 20130702
